FAERS Safety Report 7969121-0 (Version None)
Quarter: 2011Q4

REPORT INFORMATION
  Report Type: 
  Country: None (occurrence: None)
  Receive Date: 20111208
  Receipt Date: 20110822
  Transmission Date: 20120403
  Serious: No
  Sender: FDA-Public Use
  Company Number: USA/USA/11/0020776

PATIENT
  Age: 11 Year
  Sex: Female

DRUGS (1)
  1. TACROLIMUS [Suspect]
     Indication: PROPHYLAXIS AGAINST TRANSPLANT REJECTION
     Dosage: 2 MG, 2 IN 1 D, ORAL
     Route: 048
     Dates: start: 20080301

REACTIONS (2)
  - DRUG LEVEL DECREASED [None]
  - CAPSULE PHYSICAL ISSUE [None]
